FAERS Safety Report 16489142 (Version 1)
Quarter: 2019Q2

REPORT INFORMATION
  Report Type: Spontaneous
  Country: US (occurrence: US)
  Receive Date: 20190628
  Receipt Date: 20190628
  Transmission Date: 20190711
  Serious: No
  Sender: FDA-Public Use
  Company Number: US-ACCORD-068401

PATIENT
  Sex: Male

DRUGS (1)
  1. CLONAZEPAM ACCORD [Suspect]
     Active Substance: CLONAZEPAM
     Indication: ANXIETY
     Dosage: STRENGTH: 1 MG
     Route: 048

REACTIONS (5)
  - Stress [Unknown]
  - Malaise [Unknown]
  - Chills [Unknown]
  - Tremor [Unknown]
  - Drug ineffective [Unknown]
